FAERS Safety Report 12736217 (Version 2)
Quarter: 2017Q1

REPORT INFORMATION
  Report Type: Report from Study
  Country: CA (occurrence: CA)
  Receive Date: 20160912
  Receipt Date: 20170313
  Transmission Date: 20170428
  Serious: Yes (Other)
  Sender: FDA-Public Use
  Company Number: CA-PFIZER INC-2016420185

PATIENT

DRUGS (2)
  1. IBUPROFEN. [Suspect]
     Active Substance: IBUPROFEN
     Dosage: 1200 MG, DAILY
     Route: 048
     Dates: start: 198806, end: 198901
  2. IBUPROFEN. [Suspect]
     Active Substance: IBUPROFEN
     Dosage: 1200 MG, DAILY
     Route: 048
     Dates: start: 198703, end: 198710

REACTIONS (1)
  - Colitis microscopic [Recovered/Resolved]

NARRATIVE: CASE EVENT DATE: 198709
